FAERS Safety Report 12804373 (Version 1)
Quarter: 2016Q4

REPORT INFORMATION
  Report Type: Report from Study
  Country: CA (occurrence: CA)
  Receive Date: 20161003
  Receipt Date: 20161003
  Transmission Date: 20170207
  Serious: Yes (Other)
  Sender: FDA-Public Use
  Company Number: CA-REGENERON PHARMACEUTICALS, INC.-2016-22141

PATIENT

DRUGS (1)
  1. EYLEA [Suspect]
     Active Substance: AFLIBERCEPT
     Indication: NEOVASCULAR AGE-RELATED MACULAR DEGENERATION
     Dosage: 23 OS EYLEA INJECTION TO DATE
     Route: 031
     Dates: start: 20141002

REACTIONS (3)
  - Fall [Unknown]
  - Head injury [Unknown]
  - Balance disorder [Unknown]

NARRATIVE: CASE EVENT DATE: 201609
